FAERS Safety Report 4438547-4 (Version None)
Quarter: 2004Q3

REPORT INFORMATION
  Report Type: 
  Country: None (occurrence: None)
  Receive Date: 20040728
  Receipt Date: 20040304
  Transmission Date: 20050211
  Serious: No
  Sender: FDA-Public Use
  Company Number: USA040360959

PATIENT
  Sex: Female

DRUGS (1)
  1. STRATTERA [Suspect]
     Indication: HALLUCINATION, AUDITORY
     Dosage: 60 MG IN THE EVENING
     Dates: start: 20031201

REACTIONS (3)
  - ALOPECIA [None]
  - HAIR GROWTH ABNORMAL [None]
  - TRICHORRHEXIS [None]
